FAERS Safety Report 10968900 (Version 1)
Quarter: 2015Q1

REPORT INFORMATION
  Report Type: Spontaneous
  Country: BR (occurrence: BR)
  Receive Date: 20150331
  Receipt Date: 20150331
  Transmission Date: 20150721
  Serious: Yes (Other)
  Sender: FDA-Public Use
  Company Number: BR-ORION CORPORATION ORION PHARMA-ENT 2015-0074

PATIENT
  Sex: Female
  Weight: 48 kg

DRUGS (3)
  1. PROLOPA [Concomitant]
     Active Substance: BENSERAZIDE\LEVODOPA
     Route: 065
  2. COMTAN [Suspect]
     Active Substance: ENTACAPONE
     Dosage: STRENGTH: 200 MG
     Route: 048
  3. COMTAN [Suspect]
     Active Substance: ENTACAPONE
     Indication: PARKINSON^S DISEASE
     Dosage: STRENGTH: 200 MG
     Route: 048

REACTIONS (2)
  - Gastrointestinal carcinoma [Recovered/Resolved]
  - Metastases to liver [Not Recovered/Not Resolved]
